FAERS Safety Report 14174277 (Version 1)
Quarter: 2017Q4

REPORT INFORMATION
  Report Type: Spontaneous
  Country: FR (occurrence: FR)
  Receive Date: 20171109
  Receipt Date: 20171109
  Transmission Date: 20180321
  Serious: Yes (Hospitalization, Other)
  Sender: FDA-Public Use
  Company Number: FR-MERCK KGAA-2033696

PATIENT
  Age: 85 Year
  Sex: Female

DRUGS (18)
  1. INIPOMP [Concomitant]
     Active Substance: PANTOPRAZOLE SODIUM
  2. FUROSEMIDE. [Concomitant]
     Active Substance: FUROSEMIDE
  3. DAFALGAN [Concomitant]
     Active Substance: ACETAMINOPHEN
  4. LAMALINE [Concomitant]
     Active Substance: ACETAMINOPHEN\CAFFEINE\OPIUM
  5. NOVOTHYROX [Suspect]
     Active Substance: LEVOTHYROXINE SODIUM
     Dates: end: 201704
  6. BISOCE [Concomitant]
     Active Substance: BISOPROLOL
  7. MOVICOL [Concomitant]
     Active Substance: POLYETHYLENE GLYCOL 3350\POTASSIUM CHLORIDE\SODIUM BICARBONATE\SODIUM CHLORIDE
  8. FORADIL [Concomitant]
     Active Substance: FORMOTEROL FUMARATE
  9. NOVOTHYROX [Suspect]
     Active Substance: LEVOTHYROXINE SODIUM
     Indication: PRODUCT USED FOR UNKNOWN INDICATION
  10. VISMED [Concomitant]
     Active Substance: HYALURONATE SODIUM
  11. COUMADINE [Concomitant]
     Active Substance: WARFARIN SODIUM
  12. NOVOTHYROX [Suspect]
     Active Substance: LEVOTHYROXINE SODIUM
  13. UVEDOSE [Concomitant]
     Active Substance: CHOLECALCIFEROL
  14. MIFLONIL [Concomitant]
     Active Substance: BUDESONIDE
  15. CALCIPARINE [Concomitant]
     Active Substance: HEPARIN CALCIUM
  16. ALLOPURINOL. [Concomitant]
     Active Substance: ALLOPURINOL
  17. VENLAFAXINE [Concomitant]
     Active Substance: VENLAFAXINE HYDROCHLORIDE
  18. LYSANXIA [Concomitant]
     Active Substance: PRAZEPAM

REACTIONS (3)
  - Fall [Unknown]
  - Femur fracture [Unknown]
  - Pleurisy [Unknown]

NARRATIVE: CASE EVENT DATE: 201701
